FAERS Safety Report 8962118 (Version 2)
Quarter: 2013Q1

REPORT INFORMATION
  Report Type: Spontaneous
  Country: US (occurrence: US)
  Receive Date: 20121212
  Receipt Date: 20130109
  Transmission Date: 20140127
  Serious: No
  Sender: FDA-Public Use
  Company Number: US-PFIZER INC-2012313748

PATIENT
  Age: 33 Year
  Sex: Female
  Weight: 62.59 kg

DRUGS (6)
  1. LYRICA [Suspect]
     Indication: FIBROMYALGIA
     Dosage: UNK
     Route: 048
  2. LYRICA [Suspect]
     Indication: ARTHRITIS
     Dosage: 600 MG,DAILY
     Route: 048
     Dates: start: 201209
  3. LYRICA [Suspect]
     Indication: NEUROPATHY PERIPHERAL
  4. GABAPENTIN [Concomitant]
     Indication: FIBROMYALGIA
     Dosage: 300 MG, 4X/DAY
     Route: 048
  5. GABAPENTIN [Concomitant]
     Indication: ARTHRITIS
  6. GABAPENTIN [Concomitant]
     Indication: NEUROPATHY PERIPHERAL

REACTIONS (3)
  - Drug ineffective [Unknown]
  - Weight increased [Unknown]
  - Off label use [Unknown]
